FAERS Safety Report 12173617 (Version 1)
Quarter: 2016Q1

REPORT INFORMATION
  Report Type: Spontaneous
  Country: US (occurrence: None)
  Receive Date: 20160311
  Receipt Date: 20160311
  Transmission Date: 20160526
  Serious: Yes (Other)
  Sender: FDA-Public Use
  Company Number: None

PATIENT
  Age: 76 Year
  Sex: Female
  Weight: 74.84 kg

DRUGS (16)
  1. STERILE EYE WASH [Concomitant]
  2. OXEGEN [Concomitant]
  3. RED YEAST RICE [Concomitant]
     Active Substance: DIETARY SUPPLEMENT
  4. AMOLODEPINE [Concomitant]
  5. MULTI VIT [Concomitant]
  6. VITAMIN D [Concomitant]
     Active Substance: CHOLECALCIFEROL
  7. VITAMIN C [Concomitant]
     Active Substance: ASCORBIC ACID
  8. MAGNESIUM [Concomitant]
     Active Substance: MAGNESIUM
  9. CO-Q10 [Concomitant]
  10. SILICA [Concomitant]
     Active Substance: SILICON DIOXIDE
  11. FISH OIL [Concomitant]
     Active Substance: FISH OIL
  12. ALPHAGAN P [Suspect]
     Active Substance: BRIMONIDINE TARTRATE
     Indication: RETINAL OPERATION
     Route: 031
     Dates: start: 20160218, end: 20160223
  13. CARVEDILOL. [Concomitant]
     Active Substance: CARVEDILOL
  14. OFLOXACINE [Concomitant]
     Active Substance: OFLOXACIN
  15. NEOMYCIN [Concomitant]
     Active Substance: NEOMYCIN
  16. OLIVE LEAF [Concomitant]

REACTIONS (4)
  - Dysgeusia [None]
  - Ear pain [None]
  - Rhinorrhoea [None]
  - Headache [None]

NARRATIVE: CASE EVENT DATE: 20160219
